FAERS Safety Report 7652165 (Version 2)
Quarter: 2012Q4

REPORT INFORMATION
  Report Type: 
  Country: JP (occurrence: JP)
  Receive Date: 20101101
  Receipt Date: 20121105
  Transmission Date: 20130627
  Serious: Yes (Life-Threatening)
  Sender: FDA-Public Use
  Company Number: JP-ROCHE-613578

PATIENT
  Age: 65 Year
  Sex: Female
  Weight: 31 kg

DRUGS (10)
  1. TOCILIZUMAB [Suspect]
     Indication: RHEUMATOID ARTHRITIS
     Route: 041
     Dates: start: 20081203, end: 20081203
  2. TOCILIZUMAB [Suspect]
     Route: 041
     Dates: start: 20081226, end: 20081226
  3. TOCILIZUMAB [Suspect]
     Dosage: DISCONTINUED.
     Route: 041
     Dates: start: 20090123, end: 20090123
  4. PREDONINE [Concomitant]
     Indication: RHEUMATOID ARTHRITIS
     Route: 048
  5. RIFADIN [Concomitant]
     Indication: ATYPICAL MYCOBACTERIAL INFECTION
     Route: 048
  6. CRAVIT [Concomitant]
     Indication: ATYPICAL MYCOBACTERIAL INFECTION
     Route: 048
  7. LOXOPROFEN SODIUM [Concomitant]
     Dosage: Drug: SODIUM GUALENATE HYDRATE
     Route: 048
  8. LIMAPROST ALFADEX [Concomitant]
     Route: 048
  9. SODIUM GUALENATE [Concomitant]
     Dosage: Drug: SODIUM GUALENATE HYDRATE
     Route: 048
  10. VALSARTAN [Concomitant]
     Route: 048

REACTIONS (1)
  - Atypical mycobacterial infection [Recovering/Resolving]
